FAERS Safety Report 7180373-X (Version None)
Quarter: 2010Q4

REPORT INFORMATION
  Report Type: 
  Country: None (occurrence: None)
  Receive Date: 20101221
  Receipt Date: 20101213
  Transmission Date: 20110411
  Serious: Yes (Hospitalization)
  Sender: FDA-Public Use
  Company Number: A0900683A

PATIENT
  Age: 11 Year
  Sex: Male
  Weight: 36.6 kg

DRUGS (4)
  1. AUGMENTIN '125' [Suspect]
     Indication: PNEUMONIA
     Dates: start: 20101101
  2. CEFZIL [Concomitant]
     Indication: PNEUMONIA
  3. PREDNISONE [Concomitant]
  4. MESALAZINE [Concomitant]

REACTIONS (5)
  - DEHYDRATION [None]
  - DIARRHOEA [None]
  - NAUSEA [None]
  - OXYGEN SATURATION DECREASED [None]
  - VOMITING [None]
